FAERS Safety Report 23335143 (Version 1)
Quarter: 2023Q4

REPORT INFORMATION
  Report Type: Spontaneous
  Country: ES (occurrence: ES)
  Receive Date: 20231225
  Receipt Date: 20231225
  Transmission Date: 20240110
  Serious: Yes (Hospitalization, Other)
  Sender: FDA-Public Use
  Company Number: ES-AEMPS-1459502

PATIENT
  Age: 86 Year
  Sex: Male

DRUGS (2)
  1. LISINOPRIL [Interacting]
     Active Substance: LISINOPRIL
     Indication: Chronic kidney disease
     Dosage: 20 MILLIGRAM, ONCE A DAY (1-0-0, STARTED ON 10/22/2019 WHEN CHANGING TO ENALAPRIL)
     Route: 048
     Dates: start: 20191022, end: 20231124
  2. ALDACTONE [Interacting]
     Active Substance: SPIRONOLACTONE
     Indication: Chronic kidney disease
     Dosage: 50 MILLIGRAM, ONCE A DAY
     Route: 048
     Dates: start: 20211121, end: 20231124

REACTIONS (2)
  - Hyperkalaemia [Recovered/Resolved]
  - Hyponatraemia [Recovered/Resolved]

NARRATIVE: CASE EVENT DATE: 20231113
